FAERS Safety Report 9193913 (Version 2)
Quarter: 2018Q4

REPORT INFORMATION
  Report Type: Report from Study
  Country: US (occurrence: US)
  Receive Date: 20130327
  Receipt Date: 20181108
  Transmission Date: 20190205
  Serious: Yes (Other)
  Sender: FDA-Public Use
  Company Number: US-ROCHE-1206169

PATIENT

DRUGS (8)
  1. OXALIPLATIN. [Suspect]
     Active Substance: OXALIPLATIN
     Indication: COLORECTAL CANCER METASTATIC
     Dosage: EVERY 28 DAYS AS ONE CYCLE?ON DAY 1 AND DAY 15
     Route: 065
  2. FOLINIC ACID [Suspect]
     Active Substance: LEUCOVORIN
     Indication: COLORECTAL CANCER METASTATIC
     Dosage: EVERY 28 DAYS AS ONE CYCLE?ON DAY 1 AND DAY 15
     Route: 065
  3. RAD001 [Suspect]
     Active Substance: EVEROLIMUS
     Indication: COLORECTAL CANCER METASTATIC
     Dosage: DOSE LEVEL 1: 5 MG EVERY OTHER DAY
     Route: 048
  4. RAD001 [Suspect]
     Active Substance: EVEROLIMUS
     Dosage: DOSE LEVEL 2
     Route: 048
  5. RAD001 [Suspect]
     Active Substance: EVEROLIMUS
     Dosage: DOSE LEVEL 3
     Route: 048
  6. BEVACIZUMAB. [Suspect]
     Active Substance: BEVACIZUMAB
     Indication: COLORECTAL CANCER METASTATIC
     Dosage: EVERY 28 DAYS AS ONE CYCLE?ON DAY 1 AND DAY 15
     Route: 065
  7. 5-FU [Suspect]
     Active Substance: FLUOROURACIL
     Dosage: EVERY 28 DAYS AS ONE CYCLE?ON DAY 1 AND DAY 15?46-H INFUSION
     Route: 042
  8. 5-FU [Suspect]
     Active Substance: FLUOROURACIL
     Indication: COLORECTAL CANCER METASTATIC
     Dosage: EVERY 28 DAYS AS ONE CYCLE?ON DAY 1 AND DAY 15
     Route: 040

REACTIONS (11)
  - Leukopenia [Unknown]
  - Diarrhoea [Unknown]
  - Hypertension [Unknown]
  - Pulmonary embolism [Unknown]
  - Hypophosphataemia [Unknown]
  - Neutropenia [Unknown]
  - Hypokalaemia [Unknown]
  - Abdominal pain [Unknown]
  - Stomatitis [Unknown]
  - Thrombocytopenia [Unknown]
  - Decreased appetite [Unknown]
